FAERS Safety Report 6687604-0 (Version None)
Quarter: 2010Q2

REPORT INFORMATION
  Report Type: 
  Country: None (occurrence: None)
  Receive Date: 20100416
  Receipt Date: 20100416
  Transmission Date: 20101027
  Serious: No
  Sender: FDA-Public Use
  Company Number: None

PATIENT

DRUGS (1)
  1. CIPROFLOXACIN [Suspect]
     Dates: start: 20100301, end: 20100309

REACTIONS (4)
  - ARTHRALGIA [None]
  - EXERCISE TOLERANCE DECREASED [None]
  - MOVEMENT DISORDER [None]
  - MYALGIA [None]
